FAERS Safety Report 6576284-0 (Version None)
Quarter: 2010Q1

REPORT INFORMATION
  Report Type: 
  Country: None (occurrence: None)
  Receive Date: 20100210
  Receipt Date: 20100203
  Transmission Date: 20100710
  Serious: Yes (Hospitalization)
  Sender: FDA-Public Use
  Company Number: US-BIOGENIDEC-2009BI039534

PATIENT
  Age: 55 Year
  Sex: Male

DRUGS (2)
  1. TYSABRI [Suspect]
     Indication: MULTIPLE SCLEROSIS
     Route: 042
     Dates: start: 20070322, end: 20070817
  2. TYSABRI [Suspect]
     Route: 042
     Dates: start: 20090515, end: 20091030

REACTIONS (2)
  - PNEUMONIA ASPIRATION [None]
  - RECTAL CANCER [None]
